FAERS Safety Report 26034533 (Version 1)
Quarter: 2025Q4

REPORT INFORMATION
  Report Type: Spontaneous
  Country: EU (occurrence: EU)
  Receive Date: 20251112
  Receipt Date: 20251112
  Transmission Date: 20260117
  Serious: Yes (Hospitalization, Other)
  Sender: AUROBINDO
  Company Number: EU-AUROBINDO-AUR-APL-2025-055209

PATIENT
  Age: 45 Year
  Sex: Male

DRUGS (12)
  1. GEMCITABINE [Suspect]
     Active Substance: GEMCITABINE
     Indication: Nasopharyngeal cancer
     Dosage: 1250 MG/M2 (EVERY 21 DAYS UNTIL OCTOBER 2022)
  2. GEMCITABINE [Suspect]
     Active Substance: GEMCITABINE
     Dosage: 1250 MG/M2 (EVERY 21 DAYS UNTIL OCTOBER 2022)
  3. GEMCITABINE [Suspect]
     Active Substance: GEMCITABINE
     Dosage: 1250 MG/M2 ((1000 MG/M2 ON DAYS 1, 8, AND 15 EVERY 28 DAYS)
     Route: 065
  4. GEMCITABINE [Suspect]
     Active Substance: GEMCITABINE
     Dosage: 1000 MG/M2 ((1000 MG/M2 ON DAYS 1, 8, AND 15 EVERY 28 DAYS)
     Route: 065
  5. GEMCITABINE [Suspect]
     Active Substance: GEMCITABINE
     Dosage: 750 MG/M2 ((750 MG/M2 ODOSE REDUCTION FROM 1000 MG/M? TO 750 MG/M? AFTER THE THIRD CYCLE)
     Route: 065
     Dates: start: 202210
  6. PACLITAXEL [Suspect]
     Active Substance: PACLITAXEL
     Indication: Nasopharyngeal cancer
     Dosage: 175 MG/M2 (MG/M2), COMPLETING SIX CYCLES BY OCTOBER 2023)
     Route: 065
     Dates: start: 202310
  7. CARBOPLATIN [Suspect]
     Active Substance: CARBOPLATIN
     Indication: Nasopharyngeal cancer
     Dosage: AUC 6
     Route: 065
     Dates: start: 202310
  8. CISPLATIN [Suspect]
     Active Substance: CISPLATIN
     Indication: Nasopharyngeal cancer
     Dosage: 100 MG/M2  (EVERY 21 DAYS) ( COMPLETED THREE CYCLES OF CISPLATIN (100 MG/M2) EVERY 21 DAYS)
     Route: 065
     Dates: start: 202210
  9. CISPLATIN [Suspect]
     Active Substance: CISPLATIN
     Dosage: 100 MG/M2  (EVERY 21 DAYS) ( CISPLATIN (100 MG/M2) EVERY 21 DAYS FOR THREE CYCLES,  COMPLETED IN JAN
     Route: 065
     Dates: start: 202301
  10. NIVOLUMAB [Suspect]
     Active Substance: NIVOLUMAB
     Indication: Nasopharyngeal cancer
     Dosage: 480 MILLIGRAM (EVERY 28 DAYS)
     Route: 065
  11. CISPLATIN [Concomitant]
     Active Substance: CISPLATIN
     Indication: Nasopharyngeal cancer
     Dosage: EVERY 3 WEEK
     Route: 065
     Dates: end: 202210
  12. CISPLATIN [Concomitant]
     Active Substance: CISPLATIN
     Dosage: 100 MG/M2, 3W, THREE CYCLES
     Route: 065
     Dates: end: 202301

REACTIONS (3)
  - Haematotoxicity [Unknown]
  - Neuropathy peripheral [Unknown]
  - Peripheral sensory neuropathy [Unknown]
